FAERS Safety Report 23905699 (Version 5)
Quarter: 2025Q3

REPORT INFORMATION
  Report Type: Spontaneous
  Country: CA (occurrence: CA)
  Receive Date: 20240527
  Receipt Date: 20250729
  Transmission Date: 20251020
  Serious: Yes (Hospitalization)
  Sender: PFIZER
  Company Number: CA-PFIZER INC-202400103882

PATIENT
  Age: 58 Year
  Sex: Female

DRUGS (25)
  1. RUXIENCE [Suspect]
     Active Substance: RITUXIMAB-PVVR
     Indication: Rheumatoid arthritis
     Route: 042
     Dates: start: 20240509
  2. RUXIENCE [Suspect]
     Active Substance: RITUXIMAB-PVVR
     Route: 042
     Dates: start: 20240509
  3. RUXIENCE [Suspect]
     Active Substance: RITUXIMAB-PVVR
     Route: 042
     Dates: start: 20241209
  4. RUXIENCE [Suspect]
     Active Substance: RITUXIMAB-PVVR
     Route: 042
     Dates: start: 20241223
  5. RUXIENCE [Suspect]
     Active Substance: RITUXIMAB-PVVR
     Route: 042
     Dates: start: 20250724
  6. BUSPIRONE [Concomitant]
     Active Substance: BUSPIRONE HYDROCHLORIDE
     Dosage: 10 MG, 2X/DAY
  7. BOSULIF [Concomitant]
     Active Substance: BOSUTINIB MONOHYDRATE
  8. CETIRIZINE [Concomitant]
     Active Substance: CETIRIZINE HYDROCHLORIDE
     Indication: Premedication
     Dates: start: 20240509, end: 20240509
  9. CANDESARTAN [Concomitant]
     Active Substance: CANDESARTAN
     Dosage: 8 MG, 1X/DAY
  10. FUROSEMIDE [Concomitant]
     Active Substance: FUROSEMIDE
     Dosage: 40 MG, 1X/DAY
  11. HYDROXYCHLOROQUINE [Concomitant]
     Active Substance: HYDROXYCHLOROQUINE
     Dosage: 200 MG, 3X/DAY (2 TAB)
  12. METHYLPREDNISOLONE [Concomitant]
     Active Substance: METHYLPREDNISOLONE
     Indication: Premedication
     Dates: start: 20240509, end: 20240509
  13. MONTELUKAST [Concomitant]
     Active Substance: MONTELUKAST
     Dosage: 10 MG HS(HOUR OF SLEEP)
  14. NADOLOL [Concomitant]
     Active Substance: NADOLOL
     Dosage: 40 MG, 2X/DAY (0.5 TABS)
  15. PREDNISONE [Concomitant]
     Active Substance: PREDNISONE
     Route: 065
  16. PREDNISONE [Concomitant]
     Active Substance: PREDNISONE
     Route: 065
  17. PLAQUENIL [Concomitant]
     Active Substance: HYDROXYCHLOROQUINE SULFATE
     Dosage: 200 MG, 2X/DAY
     Route: 065
  18. PLAQUENIL [Concomitant]
     Active Substance: HYDROXYCHLOROQUINE SULFATE
     Route: 065
  19. SYMBICORT [Concomitant]
     Active Substance: BUDESONIDE\FORMOTEROL FUMARATE DIHYDRATE
  20. SPIRONOLACTONE [Concomitant]
     Active Substance: SPIRONOLACTONE
     Dosage: 100 MG, 1X/DAY, (3 TABS)
  21. SUCRALFATE [Concomitant]
     Active Substance: SUCRALFATE
     Dosage: 1 G, 3X/DAY
  22. URSODIOL [Concomitant]
     Active Substance: URSODIOL
  23. VITAMIN D3 [Concomitant]
     Active Substance: CHOLECALCIFEROL
     Dosage: UNK, 1X/DAY
  24. VENLAFAXINE HYDROCHLORIDE [Concomitant]
     Active Substance: VENLAFAXINE HYDROCHLORIDE
     Dosage: 75 MG, 1X/DAY (3 CAPS)
  25. ZOPICLONE [Concomitant]
     Active Substance: ZOPICLONE

REACTIONS (9)
  - Erythema [Not Recovered/Not Resolved]
  - Feeling hot [Not Recovered/Not Resolved]
  - Skin burning sensation [Recovered/Resolved]
  - Rash [Recovered/Resolved]
  - Pyrexia [Unknown]
  - Serum sickness [Not Recovered/Not Resolved]
  - Condition aggravated [Not Recovered/Not Resolved]
  - Off label use [Unknown]
  - Product use issue [Unknown]

NARRATIVE: CASE EVENT DATE: 20240101
